FAERS Safety Report 14876551 (Version 1)
Quarter: 2018Q2

REPORT INFORMATION
  Report Type: Spontaneous
  Country: US (occurrence: US)
  Receive Date: 20180510
  Receipt Date: 20180510
  Transmission Date: 20180711
  Serious: Yes (Disabling, Other)
  Sender: FDA-Public Use
  Company Number: US-REGENERON PHARMACEUTICALS, INC.-2018-22770

PATIENT

DRUGS (2)
  1. EYLEA [Suspect]
     Active Substance: AFLIBERCEPT
     Indication: PRODUCT USED FOR UNKNOWN INDICATION
     Dosage: IN LEFT EYE
  2. EYLEA [Suspect]
     Active Substance: AFLIBERCEPT
     Dosage: IN LEFT EYE
     Dates: start: 20180424, end: 20180424

REACTIONS (3)
  - Eye inflammation [Not Recovered/Not Resolved]
  - Iris injury [Not Recovered/Not Resolved]
  - Blindness unilateral [Unknown]

NARRATIVE: CASE EVENT DATE: 20180429
